FAERS Safety Report 12716910 (Version 2)
Quarter: 2016Q3

REPORT INFORMATION
  Report Type: Spontaneous
  Country: FR (occurrence: FR)
  Receive Date: 20160906
  Receipt Date: 20160906
  Transmission Date: 20161109
  Serious: Yes (Other)
  Sender: FDA-Public Use
  Company Number: FR-PFIZER INC-2016410265

PATIENT
  Age: 70 Year
  Sex: Male

DRUGS (1)
  1. RAPAMUNE [Suspect]
     Active Substance: SIROLIMUS
     Indication: POLYARTERITIS NODOSA
     Dosage: 2 MG, 1X/DAY
     Route: 048
     Dates: start: 20160623

REACTIONS (4)
  - Thrombocytopenia [Recovered/Resolved]
  - Overdose [Recovered/Resolved]
  - Product use issue [Unknown]
  - Immunosuppressant drug level increased [Recovered/Resolved]

NARRATIVE: CASE EVENT DATE: 20160707
